FAERS Safety Report 20695033 (Version 2)
Quarter: 2022Q2

REPORT INFORMATION
  Report Type: Report from Study
  Country: KR (occurrence: KR)
  Receive Date: 20220411
  Receipt Date: 20220425
  Transmission Date: 20220721
  Serious: Yes (Death)
  Sender: FDA-Public Use
  Company Number: KR-PFIZER INC-202200522681

PATIENT
  Age: 66 Year
  Sex: Male
  Weight: 68 kg

DRUGS (11)
  1. AVELUMAB [Suspect]
     Active Substance: AVELUMAB
     Indication: Non-small cell lung cancer
     Route: 042
     Dates: start: 20190208, end: 20220325
  2. AVELUMAB [Suspect]
     Active Substance: AVELUMAB
     Dates: start: 20220321
  3. AXITINIB [Suspect]
     Active Substance: AXITINIB
     Indication: Non-small cell lung cancer
     Route: 048
     Dates: start: 20190208
  4. AXITINIB [Suspect]
     Active Substance: AXITINIB
     Route: 048
  5. AXITINIB [Suspect]
     Active Substance: AXITINIB
     Route: 048
     Dates: start: 20200226, end: 20210422
  6. AMLODIPINE [Concomitant]
     Active Substance: AMLODIPINE BESYLATE
     Indication: Product used for unknown indication
     Route: 048
  7. ATORVASTATIN [Concomitant]
     Active Substance: ATORVASTATIN
     Indication: Product used for unknown indication
     Route: 048
  8. LEVOTHYROXINE [Concomitant]
     Active Substance: LEVOTHYROXINE
     Indication: Product used for unknown indication
     Route: 048
  9. CANDESARTAN [Concomitant]
     Active Substance: CANDESARTAN
     Indication: Product used for unknown indication
     Route: 048
  10. LANTUS [Concomitant]
     Active Substance: INSULIN GLARGINE
     Indication: Product used for unknown indication
     Route: 058
  11. NOVORAPID [Concomitant]
     Active Substance: INSULIN ASPART
     Indication: Product used for unknown indication
     Route: 058

REACTIONS (1)
  - Death [Fatal]

NARRATIVE: CASE EVENT DATE: 20220325
